FAERS Safety Report 13450314 (Version 1)
Quarter: 2017Q2

REPORT INFORMATION
  Report Type: Spontaneous
  Country: BR (occurrence: BR)
  Receive Date: 20170417
  Receipt Date: 20170417
  Transmission Date: 20170830
  Serious: Yes (Other)
  Sender: FDA-Public Use
  Company Number: BR-ASTRAZENECA-2017SE39644

PATIENT
  Sex: Female

DRUGS (2)
  1. ROSUVASTATIN. [Suspect]
     Active Substance: ROSUVASTATIN
     Indication: BLOOD TRIGLYCERIDES INCREASED
     Dosage: GENERIC 10 MG DAILY
     Route: 048
  2. ROSUVASTATIN. [Suspect]
     Active Substance: ROSUVASTATIN
     Indication: BLOOD CHOLESTEROL INCREASED
     Dosage: GENERIC 10 MG DAILY
     Route: 048

REACTIONS (2)
  - Retinal detachment [Recovered/Resolved]
  - Obsessive-compulsive disorder [Recovered/Resolved]
